FAERS Safety Report 8487355-6 (Version None)
Quarter: 2012Q2

REPORT INFORMATION
  Report Type: 
  Country: None (occurrence: None)
  Receive Date: 20120628
  Receipt Date: 20120628
  Transmission Date: 20120825
  Serious: No
  Sender: FDA-Public Use
  Company Number: None

PATIENT
  Sex: Female
  Weight: 53.978 kg

DRUGS (1)
  1. VALTURNA [Suspect]
     Indication: HYPOAESTHESIA
     Dosage: 1 PILL (TABLET)  EACH AM 300/320 MORNING MOUTH W/WATER
     Route: 048
     Dates: start: 20110101, end: 20120501

REACTIONS (1)
  - HYPOAESTHESIA [None]
